FAERS Safety Report 10273588 (Version 1)
Quarter: 2014Q3

REPORT INFORMATION
  Report Type: Spontaneous
  Country: FR (occurrence: FR)
  Receive Date: 20140702
  Receipt Date: 20140702
  Transmission Date: 20150326
  Serious: Yes (Hospitalization)
  Sender: FDA-Public Use
  Company Number: FR-TEVA-490702ISR

PATIENT
  Age: 42 Year
  Sex: Female

DRUGS (5)
  1. RIVOTRIL 2.5 MG [Concomitant]
     Dosage: 1.5 DOSAGE FORMS DAILY; USUAL TREATMENT
  2. IMOVANE [Concomitant]
     Active Substance: ZOPICLONE
     Dosage: 1 TABLET DAILY; USUAL TREATMENT
  3. NISIS 160 MG [Suspect]
     Active Substance: VALSARTAN
     Indication: HYPERTENSION
     Dosage: 160 MILLIGRAM DAILY;
     Route: 048
     Dates: start: 20070531, end: 20070806
  4. STABLON [Concomitant]
     Active Substance: TIANEPTINE
     Dosage: 4 DOSAGE FORMS DAILY; USUAL TREATMENT
  5. FUROSEMIDE TEVA [Suspect]
     Active Substance: FUROSEMIDE
     Indication: HYPERTENSION
     Dosage: 40 MILLIGRAM DAILY;
     Route: 048
     Dates: start: 20070531, end: 20070805

REACTIONS (4)
  - Renal failure [Unknown]
  - Urinary tract infection [Unknown]
  - Sepsis [Unknown]
  - Psoriasis [Recovering/Resolving]

NARRATIVE: CASE EVENT DATE: 20070615
